FAERS Safety Report 10786971 (Version 3)
Quarter: 2015Q2

REPORT INFORMATION
  Report Type: Report from Study
  Country: US (occurrence: US)
  Receive Date: 20150211
  Receipt Date: 20150401
  Transmission Date: 20150821
  Serious: Yes (Hospitalization)
  Sender: FDA-Public Use
  Company Number: US-BRISTOL-MYERS SQUIBB COMPANY-19891779

PATIENT
  Age: 84 Year
  Sex: Male
  Weight: 90 kg

DRUGS (51)
  1. ASPIRIN                            /00002701/ [Concomitant]
     Active Substance: ASPIRIN
     Indication: PRODUCT USED FOR UNKNOWN INDICATION
     Dosage: 81 MG, UNK
     Route: 065
     Dates: start: 20120608
  2. ASPIRIN                            /00002701/ [Concomitant]
     Active Substance: ASPIRIN
     Dates: start: 20120608, end: 20140124
  3. ATENOLOL. [Concomitant]
     Active Substance: ATENOLOL
     Indication: PRODUCT USED FOR UNKNOWN INDICATION
     Dosage: 50 MG, UNK
     Route: 065
     Dates: start: 20120608
  4. BUDESONIDE. [Concomitant]
     Active Substance: BUDESONIDE
     Dates: start: 20131121, end: 20131127
  5. PREDNISONE. [Concomitant]
     Active Substance: PREDNISONE
     Indication: PRODUCT USED FOR UNKNOWN INDICATION
     Dosage: 50MG
     Route: 065
     Dates: start: 20131129
  6. TAMSULOSIN [Concomitant]
     Active Substance: TAMSULOSIN
     Dates: start: 20131204, end: 20131209
  7. CENTRUM SILVER                     /02363801/ [Concomitant]
     Active Substance: VITAMINS
     Indication: PRODUCT USED FOR UNKNOWN INDICATION
     Route: 065
     Dates: start: 20120608, end: 20140213
  8. CYANOCOBALAMIN. [Concomitant]
     Active Substance: CYANOCOBALAMIN
     Indication: PRODUCT USED FOR UNKNOWN INDICATION
     Dosage: 2500 MG, UNK
     Route: 065
  9. COZAAR [Concomitant]
     Active Substance: LOSARTAN POTASSIUM
     Indication: PRODUCT USED FOR UNKNOWN INDICATION
     Dosage: UNK
     Route: 065
     Dates: start: 20130805
  10. NEXIUM [Concomitant]
     Active Substance: ESOMEPRAZOLE MAGNESIUM
     Dates: start: 20131024, end: 20131205
  11. PREDNISONE. [Concomitant]
     Active Substance: PREDNISONE
     Dates: start: 20131215, end: 20131216
  12. PREDNISONE. [Concomitant]
     Active Substance: PREDNISONE
     Dates: start: 20131219, end: 20131220
  13. PREDNISONE. [Concomitant]
     Active Substance: PREDNISONE
     Dates: start: 20140221, end: 20140225
  14. PREDNISONE. [Concomitant]
     Active Substance: PREDNISONE
     Dates: start: 20140419, end: 20140419
  15. TAMSULOSIN [Concomitant]
     Active Substance: TAMSULOSIN
     Dates: start: 20140416, end: 20140418
  16. PANTOPRAZOLE [Concomitant]
     Active Substance: PANTOPRAZOLE SODIUM
     Indication: PRODUCT USED FOR UNKNOWN INDICATION
     Dosage: 40 MG, UNK
     Route: 048
  17. ONDANSETRON [Concomitant]
     Active Substance: ONDANSETRON
     Indication: PRODUCT USED FOR UNKNOWN INDICATION
     Route: 065
  18. NORMAL SALINE [Concomitant]
     Active Substance: SODIUM CHLORIDE
     Indication: PRODUCT USED FOR UNKNOWN INDICATION
     Route: 065
  19. ZOCOR [Concomitant]
     Active Substance: SIMVASTATIN
     Indication: PRODUCT USED FOR UNKNOWN INDICATION
     Dosage: UNK
     Route: 065
     Dates: start: 20120723
  20. PREDNISONE. [Concomitant]
     Active Substance: PREDNISONE
     Dates: start: 20140128, end: 20140131
  21. TAMSULOSIN [Concomitant]
     Active Substance: TAMSULOSIN
     Indication: PRODUCT USED FOR UNKNOWN INDICATION
     Dosage: FLOWMAX
     Route: 065
  22. TAMSULOSIN [Concomitant]
     Active Substance: TAMSULOSIN
     Dates: start: 20140319, end: 20140320
  23. SIMVASTATIN. [Concomitant]
     Active Substance: SIMVASTATIN
     Indication: PRODUCT USED FOR UNKNOWN INDICATION
     Dosage: 40 MG, UNK
     Route: 065
  24. IPILIMUMAB [Suspect]
     Active Substance: IPILIMUMAB
     Indication: METASTATIC MALIGNANT MELANOMA
     Dosage: 60 ML, Q2WK
     Route: 042
     Dates: start: 20130926
  25. IRON [Concomitant]
     Active Substance: IRON
     Indication: PRODUCT USED FOR UNKNOWN INDICATION
     Dosage: UNK
     Route: 065
     Dates: start: 20120608
  26. LOSARTAN [Concomitant]
     Active Substance: LOSARTAN
     Indication: PRODUCT USED FOR UNKNOWN INDICATION
     Dosage: 50 MG, UNK
     Route: 065
  27. PREDNISONE. [Concomitant]
     Active Substance: PREDNISONE
     Dates: start: 20140206, end: 20140210
  28. PREDNISONE. [Concomitant]
     Active Substance: PREDNISONE
     Dates: start: 20140211, end: 20140215
  29. PRESERVISION AREDS [Concomitant]
     Indication: PRODUCT USED FOR UNKNOWN INDICATION
     Route: 065
  30. ENOXAPARIN [Concomitant]
     Active Substance: ENOXAPARIN
     Indication: PRODUCT USED FOR UNKNOWN INDICATION
     Dosage: 30 MG, UNK
     Route: 065
  31. ASPIRIN                            /00002701/ [Concomitant]
     Active Substance: ASPIRIN
     Indication: PRODUCT USED FOR UNKNOWN INDICATION
     Dosage: 81 MG, UNK
     Route: 065
  32. VITAMIN B12 [Concomitant]
     Active Substance: CYANOCOBALAMIN
     Indication: PRODUCT USED FOR UNKNOWN INDICATION
     Dosage: UNK
     Route: 065
     Dates: start: 20120608
  33. PREDNISONE. [Concomitant]
     Active Substance: PREDNISONE
     Dates: start: 20131211, end: 20131212
  34. BACTRIM [Concomitant]
     Active Substance: SULFAMETHOXAZOLE\TRIMETHOPRIM
     Indication: PRODUCT USED FOR UNKNOWN INDICATION
     Route: 065
  35. FLOMAX [Concomitant]
     Active Substance: TAMSULOSIN HYDROCHLORIDE
     Indication: PRODUCT USED FOR UNKNOWN INDICATION
     Route: 065
  36. COZAAR [Concomitant]
     Active Substance: LOSARTAN POTASSIUM
     Dates: start: 20130805, end: 20131205
  37. NEXIUM [Concomitant]
     Active Substance: ESOMEPRAZOLE MAGNESIUM
     Indication: PRODUCT USED FOR UNKNOWN INDICATION
     Dosage: UNK
     Route: 065
     Dates: start: 20131024
  38. LOSARTAN [Concomitant]
     Active Substance: LOSARTAN
     Dates: start: 20131205
  39. PREDNISONE. [Concomitant]
     Active Substance: PREDNISONE
     Dates: start: 20131209, end: 20131210
  40. PREDNISONE. [Concomitant]
     Active Substance: PREDNISONE
     Dates: start: 20131213, end: 20131214
  41. PREDNISONE. [Concomitant]
     Active Substance: PREDNISONE
     Dates: start: 20131217, end: 20131218
  42. PREDNISONE. [Concomitant]
     Active Substance: PREDNISONE
     Dates: start: 20131223, end: 20131224
  43. PREDNISONE. [Concomitant]
     Active Substance: PREDNISONE
     Dates: start: 20140201, end: 20140205
  44. TAMSULOSIN [Concomitant]
     Active Substance: TAMSULOSIN
     Dates: start: 20131108
  45. COZAAR [Concomitant]
     Active Substance: LOSARTAN POTASSIUM
     Dates: start: 20140213, end: 20140327
  46. BUDESONIDE. [Concomitant]
     Active Substance: BUDESONIDE
     Indication: PRODUCT USED FOR UNKNOWN INDICATION
     Dosage: UNK
     Route: 065
     Dates: start: 20131121
  47. PREDNISONE. [Concomitant]
     Active Substance: PREDNISONE
     Dates: start: 20131129, end: 20131208
  48. PREDNISONE. [Concomitant]
     Active Substance: PREDNISONE
     Dates: start: 20131221, end: 20131222
  49. PREDNISONE. [Concomitant]
     Active Substance: PREDNISONE
     Dates: start: 20140216, end: 20140220
  50. PREDNISONE. [Concomitant]
     Active Substance: PREDNISONE
     Dates: start: 20140226, end: 20140303
  51. INFLIXIMAB [Concomitant]
     Active Substance: INFLIXIMAB
     Indication: PRODUCT USED FOR UNKNOWN INDICATION
     Route: 065

REACTIONS (1)
  - Diarrhoea [Recovered/Resolved with Sequelae]

NARRATIVE: CASE EVENT DATE: 20131204
